FAERS Safety Report 13838415 (Version 2)
Quarter: 2018Q1

REPORT INFORMATION
  Report Type: Report from Study
  Country: None (occurrence: US)
  Receive Date: 20170807
  Receipt Date: 20180308
  Transmission Date: 20180508
  Serious: Yes (Hospitalization, Other)
  Sender: FDA-Public Use
  Company Number: US-ABBVIE-17K-163-2060207-00

PATIENT
  Sex: Male

DRUGS (1)
  1. HUMIRA [Suspect]
     Active Substance: ADALIMUMAB
     Indication: CROHN^S DISEASE
     Route: 058

REACTIONS (5)
  - Ileostomy [Unknown]
  - Intestinal obstruction [Recovering/Resolving]
  - Drug ineffective [Unknown]
  - Intestinal perforation [Recovering/Resolving]
  - Gastrointestinal fistula [Unknown]
